FAERS Safety Report 9629966 (Version 2)
Quarter: 2013Q4

REPORT INFORMATION
  Report Type: Report from Study
  Country: DE (occurrence: DE)
  Receive Date: 20131017
  Receipt Date: 20131127
  Transmission Date: 20140711
  Serious: Yes (Hospitalization, Other)
  Sender: FDA-Public Use
  Company Number: DE-ABBVIE-13P-062-1157188-00

PATIENT
  Age: 59 Year
  Sex: Male

DRUGS (5)
  1. NORVIR [Suspect]
     Indication: HIV INFECTION
     Route: 048
     Dates: start: 20091201
  2. MARAVIROC [Suspect]
     Indication: HIV INFECTION
     Route: 048
     Dates: start: 20091201
  3. RALTEGRAVIR [Suspect]
     Indication: HIV INFECTION
     Route: 048
     Dates: start: 20091201
  4. TRUVADA [Suspect]
     Indication: HIV INFECTION
     Dosage: 200/245MG
     Route: 048
     Dates: start: 20091201
  5. TELZIR [Suspect]
     Indication: HIV INFECTION
     Route: 048
     Dates: start: 20091201

REACTIONS (4)
  - Humerus fracture [Recovering/Resolving]
  - Arthropathy [Recovering/Resolving]
  - Accident [Recovering/Resolving]
  - Upper limb fracture [Recovering/Resolving]
